APPROVED DRUG PRODUCT: PERAMPANEL
Active Ingredient: PERAMPANEL
Strength: 2MG
Dosage Form/Route: TABLET;ORAL
Application: A209801 | Product #001 | TE Code: AB
Applicant: TEVA PHARMACEUTICALS USA INC
Approved: May 23, 2025 | RLD: No | RS: No | Type: RX